FAERS Safety Report 9204033 (Version 2)
Quarter: 2013Q2

REPORT INFORMATION
  Report Type: Report from Study
  Country: FR (occurrence: FR)
  Receive Date: 20130402
  Receipt Date: 20130419
  Transmission Date: 20140414
  Serious: No
  Sender: FDA-Public Use
  Company Number: PHHO2013FR004403

PATIENT
  Age: 33 Year
  Sex: Female

DRUGS (3)
  1. FTY [Suspect]
     Indication: RELAPSING-REMITTING MULTIPLE SCLEROSIS
     Dosage: UNK
     Route: 048
     Dates: start: 20130209
  2. ORAL CONTRACEPTIVE NOS [Concomitant]
     Indication: CONTRACEPTION
  3. LIORESAL [Concomitant]
     Dosage: 10 MG, UNK

REACTIONS (1)
  - Rash [Recovered/Resolved]
